FAERS Safety Report 9205996 (Version 2)
Quarter: 2014Q1

REPORT INFORMATION
  Report Type: Spontaneous
  Country: US (occurrence: US)
  Receive Date: 20130403
  Receipt Date: 20140203
  Transmission Date: 20141002
  Serious: Yes (Other)
  Sender: FDA-Public Use
  Company Number: US-BAYER-2013-039832

PATIENT
  Age: 42 Year
  Sex: Female

DRUGS (7)
  1. YASMIN [Suspect]
     Dosage: UNK
     Dates: start: 200401, end: 200703
  2. GIANVI [Suspect]
     Dosage: UNK
     Dates: start: 200401, end: 200703
  3. YAZ [Suspect]
     Dosage: UNK
     Dates: start: 200401, end: 200703
  4. OCELLA [Suspect]
     Dosage: UNK
     Dates: start: 200401, end: 200703
  5. PRILOSEC [Concomitant]
     Dosage: 20 MG, UNK
     Route: 048
  6. AZITHROMYCIN [Concomitant]
     Dosage: 250 MG, UNK
  7. CELEXA [Concomitant]
     Dosage: 40 MG, UNK

REACTIONS (5)
  - Cholecystitis chronic [None]
  - Biliary dyskinesia [None]
  - Cholecystectomy [None]
  - Pain [None]
  - Injury [None]
